FAERS Safety Report 10639089 (Version 3)
Quarter: 2015Q2

REPORT INFORMATION
  Report Type: Spontaneous
  Country: FR (occurrence: FR)
  Receive Date: 20141208
  Receipt Date: 20150513
  Transmission Date: 20150821
  Serious: Yes (Hospitalization)
  Sender: FDA-Public Use
  Company Number: FR-PFIZER INC-2014329170

PATIENT
  Age: 89 Year
  Sex: Male
  Weight: 87 kg

DRUGS (15)
  1. ADVILGEL [Suspect]
     Active Substance: IBUPROFEN
     Dosage: 1 DF, 2X/DAY
     Dates: start: 201409, end: 201409
  2. CRESTOR [Concomitant]
     Active Substance: ROSUVASTATIN CALCIUM
     Indication: HYPERCHOLESTEROLAEMIA
     Dosage: 5 MG, 1X/DAY (EVENING)
     Route: 048
     Dates: end: 20141004
  3. CORDARONE [Concomitant]
     Active Substance: AMIODARONE HYDROCHLORIDE
     Dosage: 200 MG, 1X/DAY
     Route: 048
     Dates: end: 20141004
  4. PREVISCAN [Concomitant]
     Active Substance: FLUINDIONE
     Dosage: 5 MG ON EVEN DAYS, 10 MG ON ODD DAYS
     Route: 048
  5. INEXIUM /01479302/ [Concomitant]
     Active Substance: ESOMEPRAZOLE MAGNESIUM
     Dosage: 20 MG, 1X/DAY
     Route: 048
  6. DUROGESIC [Concomitant]
     Active Substance: FENTANYL
     Dosage: 25 ?G EVERY 72 HOURS
     Route: 062
     Dates: start: 201409, end: 20141004
  7. OXYNORMORO [Concomitant]
     Active Substance: OXYCODONE
     Dosage: 5 MG, 3X/DAY (MORNING, LUNCH, EVENING)
     Route: 048
     Dates: start: 201409
  8. SEROPLEX [Concomitant]
     Active Substance: ESCITALOPRAM OXALATE
     Dosage: 10 MG, 1X/DAY (MORNING)
     Route: 048
  9. DOLIPRANE [Concomitant]
     Active Substance: ACETAMINOPHEN
     Dosage: 1000 MG, 3X/DAY (MORNING, NOON, EVENING)
     Route: 048
  10. CORTANCYL [Interacting]
     Active Substance: PREDNISONE
     Indication: POLYARTHRITIS
     Dosage: 30 MG, 1X/DAY (AT 08:00 AM)
     Route: 048
     Dates: start: 201409, end: 20140924
  11. BISOCE [Concomitant]
     Active Substance: BISOPROLOL
     Dosage: 2.5 MG, 1X/DAY IN THE MORNING
     Route: 048
  12. LASILIX [Concomitant]
     Active Substance: FUROSEMIDE
     Dosage: 40 MG, 1X/DAY, IN THE MORNING
     Route: 048
     Dates: end: 20141015
  13. FORLAX [Concomitant]
     Active Substance: POLYETHYLENE GLYCOL 4000
     Dosage: 10 G, 1X/DAY (MORNING)
     Route: 048
  14. XATRAL [Concomitant]
     Active Substance: ALFUZOSIN
     Dosage: 10 MG, 1X/DAY IN THE EVENING
     Route: 048
  15. STILNOX [Concomitant]
     Active Substance: ZOLPIDEM TARTRATE
     Dosage: 10 MG, 1X/DAY AT BEDTIME

REACTIONS (2)
  - Drug interaction [Recovering/Resolving]
  - Dermo-hypodermitis [Recovering/Resolving]

NARRATIVE: CASE EVENT DATE: 20140924
